FAERS Safety Report 4494664-4 (Version None)
Quarter: 2004Q4

REPORT INFORMATION
  Report Type: 
  Country: None (occurrence: None)
  Receive Date: 20041103
  Receipt Date: 20041025
  Transmission Date: 20050328
  Serious: Yes (Hospitalization, Disabling)
  Sender: FDA-Public Use
  Company Number: 2004PK01780

PATIENT
  Age: 72 Year
  Sex: Male
  Weight: 70 kg

DRUGS (12)
  1. PULMICORT [Suspect]
     Indication: CHRONIC OBSTRUCTIVE AIRWAYS DISEASE
     Dosage: 2 PUFF BID IH
     Route: 055
     Dates: start: 19980101
  2. PREDNISOLON ^JENAPHARM^ [Suspect]
     Indication: CHRONIC OBSTRUCTIVE AIRWAYS DISEASE
     Dosage: 10 MG DAILY PO
     Route: 048
     Dates: start: 19850101
  3. TOREM [Suspect]
     Indication: HYPERTENSION
     Dosage: 10 MG DAILY PO
     Route: 048
     Dates: start: 20031001
  4. ATACAND [Concomitant]
  5. OXIS TURBUHALER ^ASTRAZENECA^ [Concomitant]
  6. ALLOPURINOL 100 [Concomitant]
  7. BEROTEC [Concomitant]
  8. BRONCHORETARD [Concomitant]
  9. ISOKET RETARD [Concomitant]
  10. RIFUN [Concomitant]
  11. SORTIS 20 MG [Concomitant]
  12. SPIRIVA ^PFIZER^ [Concomitant]

REACTIONS (3)
  - CHRONIC OBSTRUCTIVE AIRWAYS DISEASE EXACERBATED [None]
  - DIABETES MELLITUS [None]
  - DRUG INTERACTION [None]
